FAERS Safety Report 5169634-3 (Version None)
Quarter: 2006Q4

REPORT INFORMATION
  Report Type: 
  Country: None (occurrence: None)
  Receive Date: 20060918
  Receipt Date: 20060620
  Transmission Date: 20070319
  Serious: Yes (Hospitalization, Other)
  Sender: FDA-Public Use
  Company Number: US-JNJFOC-20060505271

PATIENT
  Age: 29 Year
  Sex: Female
  Weight: 58.514 kg

DRUGS (9)
  1. ORTHO EVRA [Suspect]
     Indication: CONTRACEPTION
     Dosage: TRANSDERMAL
     Route: 062
     Dates: start: 20050101
  2. ULTRAM [Concomitant]
  3. ALLEGRA-D 12 HOUR [Concomitant]
  4. DONNATAL [Concomitant]
  5. XANAX [Concomitant]
  6. AMBIEN [Concomitant]
  7. PHENERGAN (PROMETHAZINE HYDROCHLORIDE) [Concomitant]
  8. MILK OF MAGNESIA TAB [Concomitant]
  9. ROLAIDS (DIHYDROXYALUMINIUM SODIUM CARBONATE) [Concomitant]

REACTIONS (2)
  - PULMONARY EMBOLISM [None]
  - VENOUS INSUFFICIENCY [None]
